FAERS Safety Report 4873134-5 (Version None)
Quarter: 2006Q1

REPORT INFORMATION
  Report Type: 
  Country: None (occurrence: None)
  Receive Date: 20060105
  Receipt Date: 20051013
  Transmission Date: 20060701
  Serious: Yes (Hospitalization)
  Sender: FDA-Public Use
  Company Number: FR-GLAXOSMITHKLINE-B0397933A

PATIENT
  Age: 81 Year
  Sex: Female

DRUGS (16)
  1. AUGMENTIN '125' [Suspect]
     Dosage: 1G THREE TIMES PER DAY
     Route: 048
     Dates: start: 20050105, end: 20050107
  2. AUGMENTIN '125' [Suspect]
     Dosage: 1G THREE TIMES PER DAY
     Route: 042
     Dates: start: 20041228, end: 20050105
  3. IZILOX [Suspect]
     Dosage: 1UNIT PER DAY
     Route: 048
     Dates: start: 20041229, end: 20050104
  4. CELECTOL [Suspect]
     Indication: HYPERTENSIVE HEART DISEASE
     Dosage: 200MG PER DAY
     Route: 048
  5. LEVOTHYROXINE SODIUM [Suspect]
     Indication: HYPOTHYROIDISM
     Dosage: 100MCG PER DAY
     Route: 048
  6. AMLOR [Suspect]
     Indication: HYPERTENSIVE HEART DISEASE
     Dosage: 5MG PER DAY
     Route: 048
  7. CALCIPARINE [Concomitant]
     Route: 065
  8. ENALAPRIL MALEATE AND HYDROCHLOROTHIAZIDE [Concomitant]
     Route: 065
  9. DIFFU-K [Concomitant]
     Route: 048
     Dates: end: 20041229
  10. LASILIX [Concomitant]
     Dosage: 40MG PER DAY
     Route: 048
     Dates: end: 20041229
  11. NOCTAMIDE [Concomitant]
     Dosage: 1UNIT PER DAY
     Route: 048
     Dates: end: 20041227
  12. BUFLOMEDIL [Concomitant]
     Dosage: 1UNIT PER DAY
     Route: 048
     Dates: end: 20041227
  13. ELISOR [Concomitant]
     Dosage: 1UNIT PER DAY
     Route: 048
     Dates: end: 20050101
  14. ARESTAL [Concomitant]
     Dosage: 3UNIT PER DAY
     Route: 048
     Dates: end: 20041227
  15. UMULINE [Concomitant]
     Route: 058
  16. HUMALOG [Concomitant]
     Route: 058

REACTIONS (6)
  - ALANINE AMINOTRANSFERASE INCREASED [None]
  - ASPARTATE AMINOTRANSFERASE INCREASED [None]
  - BLOOD ALKALINE PHOSPHATASE INCREASED [None]
  - CHOLESTASIS [None]
  - GAMMA-GLUTAMYLTRANSFERASE INCREASED [None]
  - MYOCARDIAL ISCHAEMIA [None]
